FAERS Safety Report 7226558-5 (Version None)
Quarter: 2011Q1

REPORT INFORMATION
  Report Type: 
  Country: None (occurrence: None)
  Receive Date: 20110114
  Receipt Date: 20110106
  Transmission Date: 20110831
  Serious: Yes (Other)
  Sender: FDA-Public Use
  Company Number: US-JNJFOC-20110101449

PATIENT
  Sex: Male
  Weight: 61.24 kg

DRUGS (7)
  1. OMEPRAZOLE [Concomitant]
  2. CENTRUM SILVER [Concomitant]
  3. REMICADE [Suspect]
     Indication: CROHN'S DISEASE
     Route: 042
  4. RESTASIS [Concomitant]
     Indication: DRY EYE
     Dosage: 1 DROP BOTH EYES BID
     Route: 047
  5. ATENOLOL [Concomitant]
     Indication: HYPERTENSION
  6. VITAMIN B-12 [Concomitant]
  7. DIGOXIN [Concomitant]

REACTIONS (1)
  - TUBERCULIN TEST POSITIVE [None]
